FAERS Safety Report 11865327 (Version 1)
Quarter: 2015Q4

REPORT INFORMATION
  Report Type: Report from Study
  Country: US (occurrence: US)
  Receive Date: 20151223
  Receipt Date: 20151223
  Transmission Date: 20160305
  Serious: Yes (Hospitalization, Other)
  Sender: FDA-Public Use
  Company Number: US-ASTRAZENECA-2015SF28003

PATIENT
  Age: 25973 Day
  Sex: Female
  Weight: 64.4 kg

DRUGS (6)
  1. CRESTOR [Suspect]
     Active Substance: ROSUVASTATIN CALCIUM
     Indication: ATRIAL FIBRILLATION
     Route: 048
  2. WARFARIN [Concomitant]
     Active Substance: WARFARIN
     Indication: ANTICOAGULANT THERAPY
     Dosage: 2.5 MG TABLET, ORALLY, ONE TABLET A DAY ON MONDAYS, WEDNESDAYS, FRIDAYS, AND SUNDAYS
     Route: 048
  3. WARFARIN [Concomitant]
     Active Substance: WARFARIN
     Indication: ANTICOAGULANT THERAPY
     Dosage: 2.5 MG, HALF PILL ON TUESDAY, THURSDAY, AND SATURDAY
     Route: 048
  4. CRESTOR [Suspect]
     Active Substance: ROSUVASTATIN CALCIUM
     Indication: HYPERTENSION
     Route: 048
  5. METOPROLOL SUCCINATE. [Suspect]
     Active Substance: METOPROLOL SUCCINATE
     Route: 048
     Dates: end: 201512
  6. SOTALOL-HCT [Concomitant]
     Indication: ATRIAL FIBRILLATION
     Route: 048

REACTIONS (8)
  - Feeling abnormal [Unknown]
  - Off label use [Unknown]
  - Product use issue [Unknown]
  - Atrial fibrillation [Unknown]
  - Drug dose omission [Unknown]
  - Hypoacusis [Not Recovered/Not Resolved]
  - Adverse event [Unknown]
  - Hypertension [Unknown]
